FAERS Safety Report 6126796-9 (Version None)
Quarter: 2009Q1

REPORT INFORMATION
  Report Type: 
  Country: None (occurrence: None)
  Receive Date: 20090320
  Receipt Date: 20090310
  Transmission Date: 20090719
  Serious: Yes (Hospitalization)
  Sender: FDA-Public Use
  Company Number: FR-PFIZER INC-2009181760

PATIENT

DRUGS (7)
  1. TAHOR [Suspect]
     Indication: HYPERCHOLESTEROLAEMIA
     Route: 048
     Dates: end: 20090116
  2. ATENOLOL [Concomitant]
     Indication: HYPERTENSION
     Dosage: 50 MG, 1X/DAY
     Route: 048
  3. RAMIPRIL [Concomitant]
     Indication: HYPERTENSION
     Dosage: 10 MG, 1X/DAY
     Route: 048
  4. FLUDEX - SLOW RELEASE [Concomitant]
     Indication: HYPERTENSION
     Dosage: 1.5 MG, 1X/DAY
     Route: 048
  5. PLAVIX [Concomitant]
     Indication: ARTERIAL DISORDER
     Dosage: 75 MG, 1X/DAY
     Route: 048
  6. KENZEN [Concomitant]
     Indication: HYPERTENSION
     Dosage: 4 MG, 1X/DAY
     Route: 048
  7. NOVORAPID [Concomitant]
     Indication: TYPE 1 DIABETES MELLITUS
     Dosage: 15 IU, 1X/DAY
     Route: 058

REACTIONS (1)
  - HEPATITIS CHOLESTATIC [None]
